FAERS Safety Report 23245908 (Version 1)
Quarter: 2023Q4

REPORT INFORMATION
  Report Type: Report from Study
  Country: OM (occurrence: OM)
  Receive Date: 20231130
  Receipt Date: 20231130
  Transmission Date: 20240110
  Serious: Yes (Other)
  Sender: FDA-Public Use
  Company Number: OM-002147023-NVSC2023OM233671

PATIENT
  Age: 25 Year
  Sex: Female
  Weight: 54.4 kg

DRUGS (17)
  1. CRIZANLIZUMAB [Suspect]
     Active Substance: CRIZANLIZUMAB
     Indication: Sickle cell anaemia with crisis
     Dosage: UNK
     Route: 042
     Dates: start: 20230103
  2. CRIZANLIZUMAB [Suspect]
     Active Substance: CRIZANLIZUMAB
     Dosage: UNK
     Route: 042
     Dates: start: 20230126
  3. CRIZANLIZUMAB [Suspect]
     Active Substance: CRIZANLIZUMAB
     Dosage: UNK
     Route: 042
     Dates: start: 20230221
  4. CRIZANLIZUMAB [Suspect]
     Active Substance: CRIZANLIZUMAB
     Dosage: UNK
     Route: 042
     Dates: start: 20230314
  5. CRIZANLIZUMAB [Suspect]
     Active Substance: CRIZANLIZUMAB
     Dosage: UNK
     Route: 042
     Dates: start: 20230417
  6. CRIZANLIZUMAB [Suspect]
     Active Substance: CRIZANLIZUMAB
     Dosage: UNK
     Route: 042
     Dates: start: 20230525
  7. CRIZANLIZUMAB [Suspect]
     Active Substance: CRIZANLIZUMAB
     Dosage: UNK
     Route: 042
     Dates: start: 20230621
  8. CRIZANLIZUMAB [Suspect]
     Active Substance: CRIZANLIZUMAB
     Dosage: UNK
     Route: 042
     Dates: start: 20230717
  9. CRIZANLIZUMAB [Suspect]
     Active Substance: CRIZANLIZUMAB
     Dosage: UNK
     Route: 042
     Dates: start: 20230815
  10. CRIZANLIZUMAB [Suspect]
     Active Substance: CRIZANLIZUMAB
     Dosage: UNK
     Route: 042
     Dates: start: 20230913, end: 20231009
  11. PLACEBO [Suspect]
     Active Substance: UNSPECIFIED INGREDIENT
     Indication: Sickle cell anaemia with crisis
     Dosage: UNK
     Route: 042
     Dates: start: 20221004
  12. PLACEBO [Suspect]
     Active Substance: UNSPECIFIED INGREDIENT
     Dosage: UNK
     Route: 042
     Dates: start: 20221101
  13. PLACEBO [Suspect]
     Active Substance: UNSPECIFIED INGREDIENT
     Dosage: UNK
     Route: 042
     Dates: start: 20221124
  14. HYDROXYUREA [Concomitant]
     Active Substance: HYDROXYUREA
     Indication: Sickle cell disease
     Dosage: 1000 MG, QD
     Route: 048
     Dates: start: 20141019, end: 20231026
  15. VITAMIN D3 [Concomitant]
     Active Substance: CHOLECALCIFEROL
     Indication: Vitamin D deficiency
     Dosage: 1000 IU, QD
     Route: 048
     Dates: start: 20210623
  16. AMITRIPTYLINE [Concomitant]
     Active Substance: AMITRIPTYLINE
     Indication: Sickle cell disease
     Dosage: 10 MG, QD
     Route: 048
     Dates: start: 20230815
  17. FOLIC ACID [Concomitant]
     Active Substance: FOLIC ACID
     Indication: Sickle cell disease
     Dosage: 5 MG, QD
     Route: 048
     Dates: start: 20230314

REACTIONS (2)
  - Abortion spontaneous [Unknown]
  - Maternal exposure during pregnancy [Unknown]

NARRATIVE: CASE EVENT DATE: 20231119
